FAERS Safety Report 4335474-8 (Version None)
Quarter: 2004Q2

REPORT INFORMATION
  Report Type: 
  Country: None (occurrence: None)
  Receive Date: 20040409
  Receipt Date: 20040329
  Transmission Date: 20050107
  Serious: Yes (Other)
  Sender: FDA-Public Use
  Company Number: MY-BRISTOL-MYERS SQUIBB COMPANY-12544417

PATIENT
  Age: 8 Year
  Sex: Male

DRUGS (3)
  1. VINCRISTINE SULFATE [Suspect]
     Indication: LYMPHOCYTIC LEUKAEMIA
     Route: 042
  2. ITRACONAZOLE [Interacting]
     Indication: ANTIFUNGAL PROPHYLAXIS
  3. DEXAMETHASONE [Concomitant]
     Route: 048

REACTIONS (6)
  - DRUG INTERACTION [None]
  - EYELID PTOSIS [None]
  - GRAND MAL CONVULSION [None]
  - ILEUS PARALYTIC [None]
  - INAPPROPRIATE ANTIDIURETIC HORMONE SECRETION [None]
  - STATUS EPILEPTICUS [None]
